FAERS Safety Report 14239637 (Version 1)
Quarter: 2017Q4

REPORT INFORMATION
  Report Type: Spontaneous
  Country: US (occurrence: None)
  Receive Date: 20171130
  Receipt Date: 20171130
  Transmission Date: 20180321
  Serious: Yes (Hospitalization)
  Sender: FDA-Public Use
  Company Number: None

PATIENT
  Age: 75 Year
  Sex: Male
  Weight: 88 kg

DRUGS (1)
  1. RIVAROXABAN [Suspect]
     Active Substance: RIVAROXABAN
     Indication: ATRIAL FIBRILLATION
     Dosage: 20 MG PM PO
     Route: 048
     Dates: start: 20150816, end: 20170710

REACTIONS (3)
  - Hypertension [None]
  - Hemianopia homonymous [None]
  - Cerebral haemorrhage [None]

NARRATIVE: CASE EVENT DATE: 20170710
